FAERS Safety Report 15491642 (Version 2)
Quarter: 2019Q2

REPORT INFORMATION
  Report Type: Spontaneous
  Country: AT (occurrence: AT)
  Receive Date: 20181012
  Receipt Date: 20190508
  Transmission Date: 20190711
  Serious: Yes (Death, Other)
  Sender: FDA-Public Use
  Company Number: AT-SUN PHARMACEUTICAL INDUSTRIES LTD-2018R1-187374

PATIENT
  Age: 45 Year
  Sex: Male

DRUGS (5)
  1. IRINOTECAN [Suspect]
     Active Substance: IRINOTECAN
     Indication: GLIOBLASTOMA
     Dosage: 125 MILLIGRAM/SQ. METER, 2/WEEK
     Route: 065
  2. IMATINIB. [Suspect]
     Active Substance: IMATINIB MESYLATE
     Indication: GLIOBLASTOMA
     Dosage: UNK
     Route: 065
  3. BEVACIZUMAB. [Suspect]
     Active Substance: BEVACIZUMAB
     Indication: GLIOBLASTOMA
     Dosage: 10 MILLIGRAM/KILOGRAM, 2/WEEK
     Route: 065
  4. PEMBROLIZUMAB. [Suspect]
     Active Substance: PEMBROLIZUMAB
     Indication: GLIOBLASTOMA
     Dosage: 200 MILLIGRAM, 3/WEEK
     Route: 065
  5. TEMOZOLOMIDE. [Suspect]
     Active Substance: TEMOZOLOMIDE
     Indication: GLIOBLASTOMA
     Dosage: 75 MILLIGRAM/SQ. METER, DAILY
     Route: 065

REACTIONS (6)
  - Metastases to spine [Fatal]
  - Vertigo [Unknown]
  - Neoplasm progression [Fatal]
  - Metastases to meninges [Fatal]
  - Metastases to central nervous system [Fatal]
  - Ataxia [Unknown]
